FAERS Safety Report 9061878 (Version 1)
Quarter: 2013Q1

REPORT INFORMATION
  Report Type: Spontaneous
  Country: DE (occurrence: DE)
  Receive Date: 20130204
  Receipt Date: 20130204
  Transmission Date: 20140127
  Serious: Yes (Other)
  Sender: FDA-Public Use
  Company Number: PHHY2013DE009644

PATIENT
  Sex: Female

DRUGS (1)
  1. GLIVEC [Suspect]
     Dosage: 400 MG, DAILY
     Dates: start: 201210

REACTIONS (2)
  - Blindness [Unknown]
  - Papilloedema [Unknown]
